FAERS Safety Report 4377271-3 (Version None)
Quarter: 2004Q2

REPORT INFORMATION
  Report Type: 
  Country: None (occurrence: None)
  Receive Date: 20040615
  Receipt Date: 20040604
  Transmission Date: 20050107
  Serious: Yes (Other)
  Sender: FDA-Public Use
  Company Number: GB-JNJFOC-20040601407

PATIENT
  Age: 46 Year
  Sex: Female

DRUGS (5)
  1. REMICADE [Suspect]
     Indication: PSORIATIC ARTHROPATHY
     Route: 042
  2. IBUPROFEN [Concomitant]
     Indication: PSORIATIC ARTHROPATHY
     Route: 065
  3. METHOTREXATE [Concomitant]
     Indication: PSORIATIC ARTHROPATHY
     Route: 049
  4. ACETAMINOPHEN [Concomitant]
     Indication: PSORIATIC ARTHROPATHY
     Route: 065
  5. FOLIC ACID [Concomitant]
     Indication: BLOOD FOLATE DECREASED
     Route: 065

REACTIONS (3)
  - BLOOD FOLATE DECREASED [None]
  - COELIAC DISEASE [None]
  - HAEMOGLOBIN DECREASED [None]
